FAERS Safety Report 5523031-7 (Version None)
Quarter: 2007Q4

REPORT INFORMATION
  Report Type: 
  Country: None (occurrence: None)
  Receive Date: 20071116
  Receipt Date: 20071116
  Transmission Date: 20080405
  Serious: Yes (Death, Hospitalization)
  Sender: FDA-Public Use
  Company Number: None

PATIENT
  Sex: Male
  Weight: 64.54 kg

DRUGS (16)
  1. RITUXAN [Suspect]
     Indication: NON-HODGKIN'S LYMPHOMA
     Dosage: 650 MG Q21DAYS IV
     Route: 042
     Dates: start: 20070216, end: 20070514
  2. DOXORUBICIN HCL [Concomitant]
  3. CYCLOPHOSPHAMIDE [Concomitant]
  4. VINCRISTINE [Concomitant]
  5. PREDNISONE TAB [Concomitant]
  6. DEXAMETHASONE [Concomitant]
  7. PALONOSETRON [Concomitant]
  8. ONDANSETRON [Concomitant]
  9. ACETAMINOPHEN [Concomitant]
  10. DIPHENHYDRAMINE HCL [Concomitant]
  11. PROMETHAZINE [Concomitant]
  12. FOLIC ACID [Concomitant]
  13. METOCLOPRAMIDE [Concomitant]
  14. RANITIDINE HCL [Concomitant]
  15. FUROSEMIDE [Concomitant]
  16. POTASSIUM CHLORIDE [Concomitant]

REACTIONS (4)
  - CARDIAC ARREST [None]
  - PNEUMONITIS [None]
  - PULSE ABSENT [None]
  - REFUSAL OF TREATMENT BY PATIENT [None]
